FAERS Safety Report 5959032-4 (Version None)
Quarter: 2008Q4

REPORT INFORMATION
  Report Type: 
  Country: None (occurrence: None)
  Receive Date: 20081118
  Receipt Date: 20081118
  Transmission Date: 20090506
  Serious: Yes (Other)
  Sender: FDA-Public Use
  Company Number: None

PATIENT
  Age: 71 Year
  Sex: Female
  Weight: 88.4514 kg

DRUGS (1)
  1. TENORMIN [Suspect]
     Indication: HYPERTENSION
     Dosage: 25 MG 1X DAILY
     Dates: start: 20080515, end: 20080602

REACTIONS (5)
  - BLADDER PAIN [None]
  - PAIN [None]
  - PRODUCT QUALITY ISSUE [None]
  - URINARY RETENTION [None]
  - URINARY TRACT PAIN [None]
